FAERS Safety Report 14972023 (Version 2)
Quarter: 2018Q3

REPORT INFORMATION
  Report Type: Spontaneous
  Country: US (occurrence: US)
  Receive Date: 20180605
  Receipt Date: 20180706
  Transmission Date: 20181010
  Serious: No
  Sender: FDA-Public Use
  Company Number: US-HORIZON-PEN-0373-2018

PATIENT
  Age: 48 Year
  Sex: Male

DRUGS (2)
  1. LOSARTAN. [Concomitant]
     Active Substance: LOSARTAN
  2. PENNSAID [Suspect]
     Active Substance: DICLOFENAC SODIUM
     Indication: PRODUCT USED FOR UNKNOWN INDICATION
     Dosage: 2 PUMPS BID
     Dates: start: 201801

REACTIONS (6)
  - Hypersensitivity [Unknown]
  - Erythema [Unknown]
  - Skin irritation [Unknown]
  - Skin burning sensation [Unknown]
  - Dry skin [Unknown]
  - Pruritus [Unknown]
